FAERS Safety Report 6526567-5 (Version None)
Quarter: 2010Q1

REPORT INFORMATION
  Report Type: 
  Country: None (occurrence: None)
  Receive Date: 20100105
  Receipt Date: 20091224
  Transmission Date: 20100710
  Serious: Yes (Hospitalization)
  Sender: FDA-Public Use
  Company Number: PHHY2009DE58742

PATIENT

DRUGS (6)
  1. TASIGNA [Suspect]
     Indication: CHRONIC MYELOID LEUKAEMIA
     Dosage: 800 MG DAILY
     Route: 048
     Dates: start: 20080619, end: 20080702
  2. TASIGNA [Suspect]
     Dosage: 400 MG DAILY
     Route: 048
     Dates: start: 20080704
  3. TASIGNA [Suspect]
     Dosage: 600 MG DAILY
     Route: 048
     Dates: start: 20090216
  4. ASPIRIN [Concomitant]
     Dosage: UNK
     Dates: start: 20090918
  5. METOPROLOL TARTRATE [Concomitant]
     Dosage: UNK
     Dates: start: 20090918
  6. TORASEMIDE [Concomitant]
     Dosage: UNK
     Dates: start: 20090918

REACTIONS (4)
  - ANGINA PECTORIS [None]
  - ARTHRALGIA [None]
  - HEADACHE [None]
  - TRANSMYOCARDIAL REVASCULARISATION [None]
